FAERS Safety Report 21700126 (Version 1)
Quarter: 2022Q4

REPORT INFORMATION
  Report Type: Spontaneous
  Country: US (occurrence: None)
  Receive Date: 20221208
  Receipt Date: 20221208
  Transmission Date: 20230113
  Serious: Yes (Hospitalization)
  Sender: FDA-Public Use
  Company Number: None

PATIENT
  Age: 78 Year
  Sex: Male
  Weight: 64.35 kg

DRUGS (7)
  1. GAMUNEX-C [Suspect]
     Active Substance: HUMAN IMMUNOGLOBULIN G
     Indication: Chronic inflammatory demyelinating polyradiculoneuropathy
     Dosage: OTHER ROUTE : INTRAVENOUS INFUSION;?
     Route: 050
     Dates: start: 20220301
  2. FLUCONAZOLE [Concomitant]
     Active Substance: FLUCONAZOLE
  3. XARELTO [Concomitant]
     Active Substance: RIVAROXABAN
  4. AZOPT [Concomitant]
     Active Substance: BRINZOLAMIDE
  5. LATANOPROST [Concomitant]
     Active Substance: LATANOPROST
  6. VITAMIN B12 [Concomitant]
     Active Substance: CYANOCOBALAMIN
  7. ALPHA LIPOIC ACID [Concomitant]
     Active Substance: .ALPHA.-LIPOIC ACID

REACTIONS (1)
  - Pulmonary embolism [None]

NARRATIVE: CASE EVENT DATE: 20220722
